FAERS Safety Report 25353376 (Version 4)
Quarter: 2025Q4

REPORT INFORMATION
  Report Type: Spontaneous
  Country: US (occurrence: US)
  Receive Date: 20250523
  Receipt Date: 20251112
  Transmission Date: 20260118
  Serious: No
  Sender: MERCK SHARP & DOHME LLC
  Company Number: US-009507513-2288177

PATIENT
  Sex: Female

DRUGS (11)
  1. SOTATERCEPT-CSRK [Suspect]
     Active Substance: SOTATERCEPT-CSRK
     Dates: end: 20251009
  2. SOTATERCEPT-CSRK [Suspect]
     Active Substance: SOTATERCEPT-CSRK
     Dates: start: 20250510, end: 20250510
  3. SOTATERCEPT-CSRK [Suspect]
     Active Substance: SOTATERCEPT-CSRK
  4. SOTATERCEPT-CSRK [Suspect]
     Active Substance: SOTATERCEPT-CSRK
  5. REMODULIN [Suspect]
     Active Substance: TREPROSTINIL
     Indication: Pulmonary arterial hypertension
     Dosage: 0.11640 ?G/KG, CONTINUING; CONCENTRATION 10.0 MG/ML
     Route: 058
     Dates: start: 202105
  6. REMODULIN [Suspect]
     Active Substance: TREPROSTINIL
     Indication: Pulmonary arterial hypertension
     Dosage: 0.11376 ?G/KG, CONTINUOUS, DEVICE (SELF-FILLED) PUMP RATE OF 43 UL/HR)
     Route: 058
     Dates: start: 202307, end: 20250509
  7. REMODULIN [Suspect]
     Active Substance: TREPROSTINIL
     Indication: Pulmonary arterial hypertension
     Dosage: 0.11111 ?G/KG, CONTINUING, (PUMP RATE OF 43 UL/HR)
     Route: 058
     Dates: end: 202505
  8. REMODULIN [Suspect]
     Active Substance: TREPROSTINIL
     Indication: Pulmonary arterial hypertension
     Route: 058
     Dates: start: 2025
  9. REMODULIN [Suspect]
     Active Substance: TREPROSTINIL
     Indication: Pulmonary arterial hypertension
     Route: 058
     Dates: start: 2025
  10. ADEMPAS [Concomitant]
     Active Substance: RIOCIGUAT
  11. LETAIRIS [Concomitant]
     Active Substance: AMBRISENTAN

REACTIONS (7)
  - Vomiting [Unknown]
  - Administration related reaction [Unknown]
  - Headache [Not Recovered/Not Resolved]
  - Platelet count decreased [Unknown]
  - Pain in jaw [Unknown]
  - Nausea [Not Recovered/Not Resolved]
  - Pain in extremity [Unknown]

NARRATIVE: CASE EVENT DATE: 20250101
